FAERS Safety Report 26038650 (Version 1)
Quarter: 2025Q4

REPORT INFORMATION
  Report Type: Spontaneous
  Country: CN (occurrence: CN)
  Receive Date: 20251113
  Receipt Date: 20251113
  Transmission Date: 20260117
  Serious: Yes (Other)
  Sender: Onesource Specialty Pharma
  Company Number: CN-STRIDES ARCOLAB LIMITED-2025OS001161

PATIENT
  Age: 64 Year
  Sex: Female

DRUGS (3)
  1. CYCLOSPORINE [Suspect]
     Active Substance: CYCLOSPORINE
     Indication: Ulcerative keratitis
     Dosage: 50 MILLIGRAM, BID
     Route: 048
  2. IGURATIMOD [Suspect]
     Active Substance: IGURATIMOD
     Indication: Ulcerative keratitis
     Dosage: 25 MILLIGRAM, BID
     Route: 048
  3. LEFLUNOMIDE [Concomitant]
     Active Substance: LEFLUNOMIDE
     Indication: Rheumatoid arthritis
     Dosage: 20 MILLIGRAM
     Route: 065

REACTIONS (2)
  - Disease progression [Unknown]
  - Off label use [Unknown]
